FAERS Safety Report 22109542 (Version 3)
Quarter: 2023Q1

REPORT INFORMATION
  Report Type: Spontaneous
  Country: US (occurrence: US)
  Receive Date: 20230317
  Receipt Date: 20230321
  Transmission Date: 20230417
  Serious: No
  Sender: FDA-Public Use
  Company Number: US-PFIZER INC-PV202300050305

PATIENT
  Age: 56 Year
  Sex: Female

DRUGS (2)
  1. NURTEC ODT [Suspect]
     Active Substance: RIMEGEPANT SULFATE
     Indication: Migraine
     Dosage: PLACE 1 TABLET ON OR UNDER THE TONGUE ONCE A DAY AS NEEDED
     Route: 048
  2. IMITREX [Concomitant]
     Active Substance: SUMATRIPTAN SUCCINATE
     Indication: Migraine
     Dosage: UNK
     Route: 048

REACTIONS (1)
  - Therapeutic product effect incomplete [Not Recovered/Not Resolved]
